FAERS Safety Report 17853098 (Version 1)
Quarter: 2020Q2

REPORT INFORMATION
  Report Type: Spontaneous
  Country: US (occurrence: US)
  Receive Date: 20200602
  Receipt Date: 20200602
  Transmission Date: 20200714
  Serious: No
  Sender: FDA-Public Use
  Company Number: US-AMAG PHARMACEUTICALS, INC.-AMAG202001801

PATIENT
  Age: 17 Year
  Sex: Female
  Weight: 56.75 kg

DRUGS (1)
  1. FERAHEME [Suspect]
     Active Substance: FERUMOXYTOL NON-STOICHIOMETRIC MAGNETITE
     Indication: IRON DEFICIENCY ANAEMIA
     Dosage: THIS WAS HER THIRD FERAHEME INFUSION.
     Route: 042
     Dates: end: 20200114

REACTIONS (3)
  - Infusion site discolouration [Not Recovered/Not Resolved]
  - Off label use [Unknown]
  - Infusion site extravasation [Not Recovered/Not Resolved]

NARRATIVE: CASE EVENT DATE: 20200114
